FAERS Safety Report 24968704 (Version 1)
Quarter: 2025Q1

REPORT INFORMATION
  Report Type: Report from Study
  Country: US (occurrence: US)
  Receive Date: 20250214
  Receipt Date: 20250214
  Transmission Date: 20250408
  Serious: No
  Sender: AMNEAL
  Company Number: US-AMNEAL PHARMACEUTICALS-2024-AMRX-01535

PATIENT
  Sex: Male

DRUGS (3)
  1. CARBIDOPA\LEVODOPA [Suspect]
     Active Substance: CARBIDOPA\LEVODOPA
     Indication: Product used for unknown indication
     Dosage: TAKE UP TO 10 CAPSULES BY MOUTH EVERY DAY AS DIRECTED 3-2-3-2
     Route: 048
  2. CARBIDOPA\LEVODOPA [Suspect]
     Active Substance: CARBIDOPA\LEVODOPA
     Dosage: 3 CAPSULES, 5X/DAY AND TAKE EXTRA DOSE OF 3 CAPSULES BY MOUTH 2-3 TIMES A WEEK
     Route: 048
  3. CARBIDOPA\LEVODOPA [Suspect]
     Active Substance: CARBIDOPA\LEVODOPA
     Dosage: 61.25-245MG ; TAKE 3 CAPSULES BY MOUTH AT 6AM AND 11AM AND 2 CAPSULES BY MOUTH AT 4PM AND 9PM FOR A
     Route: 048
     Dates: start: 20220803

REACTIONS (4)
  - Tremor [Unknown]
  - Drug effect less than expected [Unknown]
  - Product use issue [Unknown]
  - Treatment noncompliance [Unknown]
